FAERS Safety Report 4989301-6 (Version None)
Quarter: 2006Q2

REPORT INFORMATION
  Report Type: 
  Country: None (occurrence: None)
  Receive Date: 20060425
  Receipt Date: 20060412
  Transmission Date: 20061013
  Serious: Yes (Hospitalization)
  Sender: FDA-Public Use
  Company Number: 2006018838

PATIENT
  Age: 46 Year
  Sex: Female
  Weight: 117.9352 kg

DRUGS (11)
  1. DIFLUCAN [Suspect]
     Indication: FUNGAL INFECTION
     Dosage: (1 IN 1 D)
     Dates: start: 20040101
  2. DIFLUCAN [Suspect]
     Indication: VAGINAL INFECTION
     Dosage: (1 IN 1 D)
     Dates: start: 20040101
  3. TRILEPTAL [Suspect]
     Indication: BIPOLAR DISORDER
  4. METFORMIN [Concomitant]
  5. NOVOLIN 70/30 [Suspect]
  6. VENTOLIN [Concomitant]
  7. ATROVENT [Concomitant]
  8. CELEXA [Concomitant]
  9. CLONAZEPAM [Concomitant]
  10. GEODON [Concomitant]
  11. LISINOPRIL [Concomitant]

REACTIONS (7)
  - DRUG INTERACTION [None]
  - FORMICATION [None]
  - INTENTIONAL SELF-INJURY [None]
  - MENTAL DISORDER [None]
  - SENSORY DISTURBANCE [None]
  - SKIN EXFOLIATION [None]
  - VAGINAL INFECTION [None]
